FAERS Safety Report 9553432 (Version 2)
Quarter: 2013Q4

REPORT INFORMATION
  Report Type: Spontaneous
  Country: GB (occurrence: GB)
  Receive Date: 20130925
  Receipt Date: 20131031
  Transmission Date: 20140711
  Serious: Yes (Hospitalization, Other)
  Sender: FDA-Public Use
  Company Number: GB-PFIZER INC-2013273302

PATIENT
  Sex: Male

DRUGS (2)
  1. LYRICA [Suspect]
     Dosage: 6 DF, UNK
  2. ALCOHOL [Suspect]
     Dosage: UNK

REACTIONS (4)
  - Limb injury [Unknown]
  - Road traffic accident [Unknown]
  - Drug abuse [Unknown]
  - Intentional self-injury [Unknown]
